FAERS Safety Report 5499915-5 (Version None)
Quarter: 2007Q4

REPORT INFORMATION
  Report Type: 
  Country: None (occurrence: None)
  Receive Date: 20071026
  Receipt Date: 20071017
  Transmission Date: 20080405
  Serious: Yes (Death, Hospitalization)
  Sender: FDA-Public Use
  Company Number: US-MERCK-0710USA03621

PATIENT
  Sex: Female

DRUGS (1)
  1. CANCIDAS [Suspect]
     Indication: FUNGAL INFECTION
     Route: 042

REACTIONS (1)
  - MULTI-ORGAN FAILURE [None]
